FAERS Safety Report 15703759 (Version 1)
Quarter: 2018Q4

REPORT INFORMATION
  Report Type: Spontaneous
  Country: US (occurrence: US)
  Receive Date: 20181210
  Receipt Date: 20181210
  Transmission Date: 20190205
  Serious: Yes (Other)
  Sender: FDA-Public Use
  Company Number: US-GLAXOSMITHKLINE-US2018GSK214709

PATIENT
  Age: 29 Year
  Sex: Female

DRUGS (2)
  1. BENLYSTA [Suspect]
     Active Substance: BELIMUMAB
     Indication: SYSTEMIC LUPUS ERYTHEMATOSUS
     Dosage: UNK UNK, WE
     Route: 042
     Dates: start: 2018
  2. METHOTREXATE. [Concomitant]
     Active Substance: METHOTREXATE
     Dosage: UNK

REACTIONS (17)
  - Gastric disorder [Unknown]
  - Back injury [Unknown]
  - Injection site pain [Unknown]
  - Systemic lupus erythematosus [Unknown]
  - Fatigue [Unknown]
  - Nausea [Unknown]
  - Perioral dermatitis [Unknown]
  - Abnormal sensation in eye [Unknown]
  - Decreased appetite [Unknown]
  - Pain [Unknown]
  - Feeling abnormal [Unknown]
  - Dysgeusia [Unknown]
  - Rash [Unknown]
  - Hypoaesthesia eye [Unknown]
  - Arthralgia [Unknown]
  - Joint instability [Unknown]
  - Oropharyngeal pain [Unknown]

NARRATIVE: CASE EVENT DATE: 2018
